FAERS Safety Report 5819176-4 (Version None)
Quarter: 2008Q3

REPORT INFORMATION
  Report Type: 
  Country: None (occurrence: None)
  Receive Date: 20080723
  Receipt Date: 20080716
  Transmission Date: 20090109
  Serious: Yes (Hospitalization)
  Sender: FDA-Public Use
  Company Number: B0517147B

PATIENT
  Age: 56 Year
  Sex: Female
  Weight: 51 kg

DRUGS (7)
  1. LAPATINIB [Suspect]
     Dosage: 1250MG PER DAY
     Route: 048
     Dates: start: 20080322
  2. CAPECITABINE [Suspect]
     Dosage: 2300MG PER DAY
     Route: 048
     Dates: start: 20080321
  3. WARFARIN SODIUM [Suspect]
     Indication: DRUG USE FOR UNKNOWN INDICATION
     Dosage: 2MG PER DAY
     Route: 048
     Dates: start: 20080424, end: 20080509
  4. WARFARIN SODIUM [Suspect]
     Dosage: 1MG PER DAY
     Route: 048
     Dates: start: 20080426, end: 20080508
  5. OXYCODONE HCL [Concomitant]
     Indication: DRUG USE FOR UNKNOWN INDICATION
     Dosage: 80MG PER DAY
     Route: 048
  6. FENTANYL-100 [Concomitant]
     Indication: DRUG USE FOR UNKNOWN INDICATION
     Dosage: 8.4MG PER DAY
  7. IBUPROFEN + PARACETAMOL + CODEINE PHOSPHATE [Concomitant]
     Dosage: 4CAP PER DAY
     Route: 048

REACTIONS (2)
  - CYSTITIS BACTERIAL [None]
  - HAEMATURIA [None]
